FAERS Safety Report 6958876-X (Version None)
Quarter: 2010Q3

REPORT INFORMATION
  Report Type: 
  Country: None (occurrence: None)
  Receive Date: 20100831
  Receipt Date: 20100813
  Transmission Date: 20110219
  Serious: Yes (Hospitalization, Other)
  Sender: FDA-Public Use
  Company Number: US-BAYER-US-2007-040340

PATIENT
  Age: 48 Year
  Sex: Female

DRUGS (6)
  1. BETASERON [Suspect]
     Indication: RELAPSING-REMITTING MULTIPLE SCLEROSIS
     Route: 058
     Dates: start: 20020701, end: 20021001
  2. BETASERON [Suspect]
     Dosage: TOTAL DAILY DOSE: 2 MIU
     Route: 058
     Dates: start: 20040710
  3. BETASERON [Suspect]
     Dosage: TOTAL DAILY DOSE: 8 MIU
     Route: 058
     Dates: start: 20070404
  4. BETASERON [Suspect]
     Dosage: TOTAL DAILY DOSE: 8 MIU
     Route: 058
  5. CYTOMEL [Concomitant]
     Indication: FATIGUE
  6. SYNTHROID [Concomitant]
     Dates: start: 19720101

REACTIONS (8)
  - BALANCE DISORDER [None]
  - BLOOD PARATHYROID HORMONE DECREASED [None]
  - BLOOD THYROID STIMULATING HORMONE INCREASED [None]
  - DIPLOPIA [None]
  - FATIGUE [None]
  - GAIT DISTURBANCE [None]
  - MULTIPLE SCLEROSIS RELAPSE [None]
  - THYROID FUNCTION TEST ABNORMAL [None]
